FAERS Safety Report 17797677 (Version 12)
Quarter: 2023Q2

REPORT INFORMATION
  Report Type: Spontaneous
  Country: FR (occurrence: FR)
  Receive Date: 20200518
  Receipt Date: 20230613
  Transmission Date: 20230721
  Serious: Yes (Life-Threatening, Hospitalization, Other)
  Sender: FDA-Public Use
  Company Number: FR-ROCHE-2591572

PATIENT
  Age: 52 Year
  Sex: Female

DRUGS (9)
  1. PREDNISONE [Suspect]
     Active Substance: PREDNISONE
     Indication: Immunosuppressant drug therapy
     Dosage: 15 MILLIGRAM, QD
     Route: 065
  2. PREDNISONE [Suspect]
     Active Substance: PREDNISONE
     Indication: Granulomatosis with polyangiitis
  3. LOPINAVIR\RITONAVIR [Suspect]
     Active Substance: LOPINAVIR\RITONAVIR
     Indication: COVID-19 pneumonia
     Dosage: UNK
     Route: 065
  4. RITUXIMAB [Suspect]
     Active Substance: RITUXIMAB
     Indication: Granulomatosis with polyangiitis
     Dosage: 375 MG/M2 WEEKLY FOR 4 WEEKS
     Route: 065
     Dates: start: 201910
  5. RITUXIMAB [Suspect]
     Active Substance: RITUXIMAB
     Indication: Immunosuppressant drug therapy
     Dosage: 500 MG (MAINTENANCE THERAPY), SINGLE DOSE
     Route: 065
     Dates: start: 20200305
  6. RITUXIMAB [Suspect]
     Active Substance: RITUXIMAB
     Dosage: 375MG/SQ. METER, Q28D (375MG/M2 WEEKLY FOR 4 WKS)
     Route: 065
     Dates: start: 201910
  7. HYDROXYCHLOROQUINE SULFATE [Suspect]
     Active Substance: HYDROXYCHLOROQUINE SULFATE
     Indication: COVID-19
     Dosage: 200 MG/8 HOUR FOR 10 DAYS FROM DAY 19
     Route: 065
     Dates: start: 20200325
  8. HYDROXYCHLOROQUINE SULFATE [Suspect]
     Active Substance: HYDROXYCHLOROQUINE SULFATE
     Dosage: 200 MILLIGRAM, Q8H
     Route: 065
     Dates: start: 2020, end: 2020
  9. NEBIVOLOL [Concomitant]
     Active Substance: NEBIVOLOL
     Indication: Hypertension
     Dosage: UNK
     Route: 065

REACTIONS (14)
  - COVID-19 [Recovered/Resolved]
  - COVID-19 pneumonia [Recovered/Resolved]
  - Therapeutic response unexpected [Unknown]
  - Cough [Recovering/Resolving]
  - Myalgia [Recovering/Resolving]
  - Pyrexia [Recovering/Resolving]
  - Headache [Recovering/Resolving]
  - Respiratory failure [Recovered/Resolved]
  - Acute respiratory distress syndrome [Recovering/Resolving]
  - Lung opacity [Recovering/Resolving]
  - Interstitial lung disease [Recovering/Resolving]
  - Coronavirus infection [Recovered/Resolved]
  - Off label use [Unknown]
  - Intentional product misuse [Unknown]

NARRATIVE: CASE EVENT DATE: 20200301
